FAERS Safety Report 7035436-6 (Version None)
Quarter: 2010Q4

REPORT INFORMATION
  Report Type: 
  Country: None (occurrence: None)
  Receive Date: 20101007
  Receipt Date: 20101007
  Transmission Date: 20110411
  Serious: Yes (Congenital Anomaly, Other)
  Sender: FDA-Public Use
  Company Number: None

PATIENT
  Age: 3 Month
  Sex: Female
  Weight: 4.536 kg

DRUGS (1)
  1. ZOFRAN [Suspect]
     Indication: NAUSEA
     Dosage: 1 TABLET Q 4-6 HOURS PO
     Route: 048
     Dates: start: 20080901, end: 20090402

REACTIONS (10)
  - ABDOMINAL PAIN [None]
  - ANXIETY [None]
  - CONVULSION [None]
  - GASTROINTESTINAL DISORDER [None]
  - MATERNAL DRUGS AFFECTING FOETUS [None]
  - MOTOR DEVELOPMENTAL DELAY [None]
  - MUSCLE RIGIDITY [None]
  - MUSCULOSKELETAL STIFFNESS [None]
  - NERVOUS SYSTEM DISORDER [None]
  - TORTICOLLIS [None]
